FAERS Safety Report 16361263 (Version 2)
Quarter: 2019Q3

REPORT INFORMATION
  Report Type: Spontaneous
  Country: TJ (occurrence: TJ)
  Receive Date: 20190528
  Receipt Date: 20190823
  Transmission Date: 20191004
  Serious: Yes (Death, Other)
  Sender: FDA-Public Use
  Company Number: TJ-JNJFOC-20190521024

PATIENT
  Age: 22 Year
  Sex: Female
  Weight: 35 kg

DRUGS (10)
  1. CLOFAZIMINE [Suspect]
     Active Substance: CLOFAZIMINE
     Indication: TUBERCULOSIS
     Route: 048
     Dates: start: 20190401, end: 20190510
  2. TMC207 [Suspect]
     Active Substance: BEDAQUILINE
     Indication: TUBERCULOSIS
     Route: 048
     Dates: start: 20190401, end: 20190414
  3. PYRAZINAMIDE. [Suspect]
     Active Substance: PYRAZINAMIDE
     Indication: TUBERCULOSIS
     Route: 048
     Dates: start: 20190401, end: 20190510
  4. VITAMIN C [Concomitant]
     Active Substance: ASCORBIC ACID
     Indication: PSYCHIATRIC SYMPTOM
     Route: 042
     Dates: start: 20190422, end: 20190427
  5. GLUCOSE 5% BRAUN [Concomitant]
     Active Substance: DEXTROSE
     Indication: PSYCHIATRIC SYMPTOM
     Route: 042
     Dates: start: 20190422, end: 20190427
  6. TMC207 [Suspect]
     Active Substance: BEDAQUILINE
     Route: 048
     Dates: start: 20190415, end: 20190510
  7. MOXIFLOXACIN. [Suspect]
     Active Substance: MOXIFLOXACIN
     Indication: TUBERCULOSIS
     Route: 048
     Dates: start: 20190401, end: 20190510
  8. AMITRIPTYLINE [Concomitant]
     Active Substance: AMITRIPTYLINE
     Indication: PSYCHIATRIC SYMPTOM
     Route: 042
     Dates: start: 20190422, end: 20190427
  9. DIAZEPAM. [Concomitant]
     Active Substance: DIAZEPAM
     Indication: PSYCHIATRIC SYMPTOM
     Route: 042
     Dates: start: 20190422, end: 20190427
  10. CAPREOMYCIN [Suspect]
     Active Substance: CAPREOMYCIN
     Indication: TUBERCULOSIS
     Route: 030
     Dates: start: 20190401, end: 20190510

REACTIONS (2)
  - Cor pulmonale acute [Fatal]
  - Blood urea increased [Unknown]

NARRATIVE: CASE EVENT DATE: 20190416
